FAERS Safety Report 19990647 (Version 2)
Quarter: 2021Q4

REPORT INFORMATION
  Report Type: Spontaneous
  Country: DE (occurrence: DE)
  Receive Date: 20211025
  Receipt Date: 20211101
  Transmission Date: 20220303
  Serious: Yes (Death, Life-Threatening, Hospitalization, Other)
  Sender: FDA-Public Use
  Company Number: DE-STADA-228445

PATIENT
  Age: 68 Year
  Sex: Male

DRUGS (3)
  1. DOXYCYCLINE [Suspect]
     Active Substance: DOXYCYCLINE
     Indication: Pemphigoid
     Dosage: 1 DOSAGE FORM
     Route: 065
  2. METHYLPREDNISOLONE [Concomitant]
     Active Substance: METHYLPREDNISOLONE
     Indication: Pemphigoid
     Dosage: 1 DOSAGE FORM, 28MG-0-8MG
     Route: 065
  3. NICOTINAMIDE [Concomitant]
     Active Substance: NIACINAMIDE
     Indication: Pemphigoid
     Dosage: 1 DOSAGE FORM
     Route: 065

REACTIONS (9)
  - Pneumocystis jirovecii pneumonia [Fatal]
  - Klebsiella infection [Fatal]
  - Acute respiratory distress syndrome [Fatal]
  - Aspergillus infection [Unknown]
  - Hypercapnia [Unknown]
  - Respiratory disorder [Unknown]
  - Oedema peripheral [Unknown]
  - Hepatotoxicity [Unknown]
  - Intentional product use issue [Unknown]
